FAERS Safety Report 18188730 (Version 1)
Quarter: 2020Q3

REPORT INFORMATION
  Report Type: Spontaneous
  Country: CN (occurrence: CN)
  Receive Date: 20200824
  Receipt Date: 20200824
  Transmission Date: 20201103
  Serious: Yes (Death)
  Sender: FDA-Public Use
  Company Number: CN-INCYTE CORPORATION-2020IN007919

PATIENT

DRUGS (1)
  1. JAKAVI [Suspect]
     Active Substance: RUXOLITINIB
     Indication: HAEMOPHAGOCYTIC LYMPHOHISTIOCYTOSIS
     Dosage: 10 MG
     Route: 065

REACTIONS (4)
  - Haemophagocytic lymphohistiocytosis [Fatal]
  - Decreased appetite [Unknown]
  - Nausea [Unknown]
  - Product use in unapproved indication [Unknown]
